FAERS Safety Report 18176996 (Version 2)
Quarter: 2020Q3

REPORT INFORMATION
  Report Type: Spontaneous
  Country: US (occurrence: US)
  Receive Date: 20200820
  Receipt Date: 20200824
  Transmission Date: 20201103
  Serious: No
  Sender: FDA-Public Use
  Company Number: US-PFIZER INC-2020320842

PATIENT
  Age: 77 Year
  Sex: Female
  Weight: 63.5 kg

DRUGS (3)
  1. LEVOXYL [Suspect]
     Active Substance: LEVOTHYROXINE SODIUM
     Dosage: 100 UG (ADDED 25 UG TO 75 UG), ONCE DAILY
  2. LEVOXYL [Suspect]
     Active Substance: LEVOTHYROXINE SODIUM
     Indication: THYROID FUNCTION TEST
     Dosage: 75 UG, 1 TABLET ONCE DAILY
     Route: 048
  3. LEVOTHYROXINE SODIUM. [Suspect]
     Active Substance: LEVOTHYROXINE SODIUM
     Dosage: UNK

REACTIONS (5)
  - Drug hypersensitivity [Unknown]
  - Drug ineffective [Unknown]
  - Reaction to excipient [Unknown]
  - Functional gastrointestinal disorder [Not Recovered/Not Resolved]
  - Intentional product misuse [Unknown]
